FAERS Safety Report 17962238 (Version 1)
Quarter: 2020Q2

REPORT INFORMATION
  Report Type: Report from Study
  Country: None (occurrence: US)
  Receive Date: 20200630
  Receipt Date: 20200630
  Transmission Date: 20200714
  Serious: Yes (Hospitalization, Other)
  Sender: FDA-Public Use
  Company Number: US-BIOVITRUM-2019US4291

PATIENT
  Sex: Female

DRUGS (1)
  1. KINERET [Suspect]
     Active Substance: ANAKINRA
     Indication: CRYSTAL ARTHROPATHY
     Route: 058
     Dates: start: 20190313

REACTIONS (3)
  - Wound [Unknown]
  - Staphylococcal infection [Unknown]
  - Off label use [Unknown]
